FAERS Safety Report 23309452 (Version 5)
Quarter: 2024Q1

REPORT INFORMATION
  Report Type: Spontaneous
  Country: FR (occurrence: FR)
  Receive Date: 20231218
  Receipt Date: 20240216
  Transmission Date: 20240409
  Serious: Yes (Other)
  Sender: FDA-Public Use
  Company Number: FR-SA-SAC20231214000924

PATIENT
  Age: 7 Year
  Sex: Female
  Weight: 24.1 kg

DRUGS (27)
  1. CORTIZONE 10 EASY RELIEF [Suspect]
     Active Substance: HYDROCORTISONE
     Indication: B-cell lymphoma
     Dosage: START DATE OF MOST RECENT DOSE PRIOR TO SAE ONSET 11/AUG/2023; ROUTE: INTRATHECAL
     Route: 037
     Dates: start: 20230811
  2. CORTIZONE 10 EASY RELIEF [Suspect]
     Active Substance: HYDROCORTISONE
     Dosage: 7.5 MG, QD
     Dates: start: 20230405
  3. MESNA [Suspect]
     Active Substance: MESNA
     Indication: B-cell lymphoma
     Dosage: 530 MG, QD
     Route: 042
     Dates: start: 20230811
  4. MESNA [Suspect]
     Active Substance: MESNA
     Dosage: 530 MG, QD
     Route: 048
     Dates: start: 20230814
  5. MESNA [Suspect]
     Active Substance: MESNA
     Dosage: 2120 MG
     Route: 042
  6. GLOFITAMAB [Suspect]
     Active Substance: GLOFITAMAB
     Indication: B-cell lymphoma
     Dosage: 0.7 MG, 1X
     Route: 042
     Dates: start: 20230818
  7. GLOFITAMAB [Suspect]
     Active Substance: GLOFITAMAB
     Dosage: 3.5 MG
     Route: 042
     Dates: start: 20230828
  8. OBINUTUZUMAB [Suspect]
     Active Substance: OBINUTUZUMAB
     Indication: B-cell lymphoma
     Dosage: UNKNOWN
     Route: 042
     Dates: start: 20230809
  9. OBINUTUZUMAB [Suspect]
     Active Substance: OBINUTUZUMAB
     Dosage: 490 MG
     Route: 042
     Dates: start: 20230810
  10. CARBOPLATIN [Suspect]
     Active Substance: CARBOPLATIN
     Indication: B-cell lymphoma
     Dosage: UNKNOWN
     Route: 042
     Dates: start: 20230811
  11. IFOSFAMIDE [Suspect]
     Active Substance: IFOSFAMIDE
     Indication: B-cell lymphoma
     Dosage: 2.67 MG, QD
     Route: 042
     Dates: start: 20230811
  12. ETOPOSIDE [Suspect]
     Active Substance: ETOPOSIDE
     Indication: B-cell lymphoma
     Dosage: 90 MG, QD
     Route: 042
     Dates: start: 20230811
  13. METHOTREXATE [Suspect]
     Active Substance: METHOTREXATE
     Indication: B-cell lymphoma
     Dosage: MOST RECENT DOSE RECEIVED ON 11/AUG/2023^ ROUTE: INTRATHECAL
     Route: 037
     Dates: start: 20230811
  14. CYTARABINE [Suspect]
     Active Substance: CYTARABINE
     Indication: B-cell lymphoma
     Dosage: MOST RECENT DOSE RECEIVED ON 11/AUG/2023^ ROUTE: INTRATHECAL
     Route: 037
     Dates: start: 20230811
  15. OXYGEN [Concomitant]
     Active Substance: OXYGEN
     Indication: Product used for unknown indication
     Dosage: UNK
     Route: 065
  16. BACTRIM [Concomitant]
     Active Substance: SULFAMETHOXAZOLE\TRIMETHOPRIM
     Indication: Product used for unknown indication
     Dosage: 3 TIMES PER WEEK
     Route: 065
     Dates: start: 20230907
  17. RASBURICASE [Concomitant]
     Active Substance: RASBURICASE
     Indication: Product used for unknown indication
     Dosage: UNK
     Route: 065
     Dates: start: 20230809, end: 20230810
  18. DEXAMETHASONE [Concomitant]
     Active Substance: DEXAMETHASONE
     Indication: Product used for unknown indication
     Dosage: UNK
     Route: 065
     Dates: start: 20230809, end: 20230828
  19. DOLIPRANE [Concomitant]
     Active Substance: ACETAMINOPHEN
     Indication: Product used for unknown indication
     Dosage: UNK
     Route: 065
     Dates: start: 20230809, end: 20230828
  20. DOLIPRANE [Concomitant]
     Active Substance: ACETAMINOPHEN
     Dosage: UNK
     Dates: start: 20230810, end: 20230813
  21. POLARAMINE [Concomitant]
     Active Substance: DEXCHLORPHENIRAMINE MALEATE
     Indication: Product used for unknown indication
     Dosage: UNK
     Route: 065
     Dates: start: 20230809, end: 20230828
  22. INTRATECT [Concomitant]
     Active Substance: HUMAN IMMUNOGLOBULIN G
     Indication: Product used for unknown indication
     Dosage: UNK
     Route: 065
     Dates: start: 20230822, end: 20230822
  23. ALOXI [Concomitant]
     Active Substance: PALONOSETRON HYDROCHLORIDE
     Indication: Product used for unknown indication
     Dosage: UNK
     Dates: end: 20230815
  24. HYDROCORTISONE [Concomitant]
     Active Substance: HYDROCORTISONE
     Indication: Product used for unknown indication
     Dosage: UNK
     Route: 065
  25. ATARAX [Concomitant]
     Active Substance: HYDROXYZINE HYDROCHLORIDE
     Indication: Product used for unknown indication
     Dosage: UNK
     Route: 065
     Dates: start: 20230812, end: 20230818
  26. AMOXICILLIN [Concomitant]
     Active Substance: AMOXICILLIN
     Indication: Product used for unknown indication
     Dosage: UNK
     Route: 065
     Dates: start: 20230822, end: 20230828
  27. HALDOL [Concomitant]
     Active Substance: HALOPERIDOL
     Indication: Product used for unknown indication
     Dosage: UNK
     Dates: start: 20230811, end: 20230811

REACTIONS (1)
  - Cytokine release syndrome [Recovered/Resolved]

NARRATIVE: CASE EVENT DATE: 20230829
